FAERS Safety Report 10953223 (Version 1)
Quarter: 2015Q1

REPORT INFORMATION
  Report Type: Spontaneous
  Country: US (occurrence: None)
  Receive Date: 20150226
  Receipt Date: 20150226
  Transmission Date: 20150721
  Serious: Yes (Other)
  Sender: FDA-Public Use
  Company Number: TPA2012A05094

PATIENT
  Age: 74 Year
  Sex: Male
  Weight: 77.11 kg

DRUGS (3)
  1. INSLUIN [Concomitant]
  2. ACTOS [Suspect]
     Active Substance: PIOGLITAZONE HYDROCHLORIDE
     Indication: TYPE 2 DIABETES MELLITUS
     Dates: start: 200910, end: 201007
  3. VANDIA (ROSIGLITAZONE MALEATE) [Concomitant]

REACTIONS (2)
  - Cystitis [None]
  - Bladder cancer [None]

NARRATIVE: CASE EVENT DATE: 201007
